FAERS Safety Report 7958070-X (Version None)
Quarter: 2011Q4

REPORT INFORMATION
  Report Type: 
  Country: None (occurrence: None)
  Receive Date: 20111201
  Receipt Date: 20111125
  Transmission Date: 20120403
  Serious: Yes (Hospitalization)
  Sender: FDA-Public Use
  Company Number: MSTR-NO-1111S-0261

PATIENT
  Age: 55 Year
  Sex: Female

DRUGS (2)
  1. METASTRON [Suspect]
     Indication: METASTATIC PAIN
     Dosage: 110 MSQ, SINGLE DOSE, INTRAVENOUS, 112 MBQ, SINGLE DOSE, INTRAVENOUS
     Route: 042
     Dates: start: 20110916, end: 20110916
  2. METASTRON [Suspect]
     Indication: METASTATIC PAIN
     Dosage: 110 MSQ, SINGLE DOSE, INTRAVENOUS, 112 MBQ, SINGLE DOSE, INTRAVENOUS
     Route: 042
     Dates: start: 20110610, end: 20110610

REACTIONS (1)
  - ANAEMIA [None]
